FAERS Safety Report 5584504-4 (Version None)
Quarter: 2008Q1

REPORT INFORMATION
  Report Type: 
  Country: None (occurrence: None)
  Receive Date: 20080108
  Receipt Date: 20071226
  Transmission Date: 20080703
  Serious: Yes (Other)
  Sender: FDA-Public Use
  Company Number: TR-ELI_LILLY_AND_COMPANY-TR200712005101

PATIENT
  Sex: Male
  Weight: 84 kg

DRUGS (4)
  1. HUMALOG [Suspect]
     Dosage: 23 U, MORNING NOON AND EVENING
     Route: 058
     Dates: start: 20050101
  2. HUMULIN N [Suspect]
     Dosage: 26 UNITS/MORNING
     Route: 058
     Dates: start: 20050101
  3. NORVASC /00972402/ [Concomitant]
     Indication: HYPERTENSION
     Dosage: UNK, 2/D
     Route: 048
     Dates: start: 20000101
  4. LEVOTIRON [Concomitant]
     Indication: GOITRE
     Dosage: UNK, DAILY (1/D)
     Route: 048
     Dates: start: 20050101

REACTIONS (1)
  - RENAL TRANSPLANT [None]
